FAERS Safety Report 7132913-4 (Version None)
Quarter: 2010Q4

REPORT INFORMATION
  Report Type: 
  Country: None (occurrence: None)
  Receive Date: 20101202
  Receipt Date: 20101128
  Transmission Date: 20110411
  Serious: Yes (Disabling, Other)
  Sender: FDA-Public Use
  Company Number: US-PFIZER INC-2010158730

PATIENT
  Sex: Female

DRUGS (1)
  1. CHANTIX [Suspect]
     Indication: SMOKING CESSATION THERAPY
     Dosage: UNK MG, UNK
     Route: 048
     Dates: start: 20100101

REACTIONS (2)
  - ABDOMINAL DISCOMFORT [None]
  - DEAFNESS UNILATERAL [None]
